FAERS Safety Report 9885312 (Version 1)
Quarter: 2014Q1

REPORT INFORMATION
  Report Type: Spontaneous
  Country: US (occurrence: US)
  Receive Date: 20140210
  Receipt Date: 20140210
  Transmission Date: 20141002
  Serious: No
  Sender: FDA-Public Use
  Company Number: US-PFIZER INC-2014033476

PATIENT
  Age: 50 Year
  Sex: Female

DRUGS (2)
  1. EFFEXOR XR [Suspect]
     Indication: OBSESSIVE-COMPULSIVE DISORDER
     Dosage: 187.5 MG, DAILY
  2. EFFEXOR XR [Suspect]
     Indication: ANXIETY
     Dosage: 150 MG, DAILY

REACTIONS (5)
  - Myalgia [Unknown]
  - Malaise [Unknown]
  - Nausea [Unknown]
  - Fall [Unknown]
  - Off label use [Unknown]
